FAERS Safety Report 5254669-2 (Version None)
Quarter: 2007Q1

REPORT INFORMATION
  Report Type: 
  Country: None (occurrence: None)
  Receive Date: 20070302
  Receipt Date: 20070220
  Transmission Date: 20070707
  Serious: Yes (Other)
  Sender: FDA-Public Use
  Company Number: JP-PFIZER INC-2007014982

PATIENT
  Age: 65 Year
  Sex: Female

DRUGS (4)
  1. MIGLITOL TABLET [Suspect]
     Indication: DIABETES MELLITUS
     Dosage: DAILY DOSE:100MG
     Route: 048
     Dates: start: 20070210, end: 20070218
  2. ADALAT [Concomitant]
     Route: 048
  3. BAYCARON [Concomitant]
     Route: 048
     Dates: start: 20030110
  4. BEZATOL [Concomitant]
     Route: 048
     Dates: start: 20041224

REACTIONS (3)
  - ERYTHEMA MULTIFORME [None]
  - PROCTALGIA [None]
  - PRURITUS [None]
